FAERS Safety Report 14614648 (Version 1)
Quarter: 2018Q1

REPORT INFORMATION
  Report Type: Spontaneous
  Country: US (occurrence: US)
  Receive Date: 20180308
  Receipt Date: 20180308
  Transmission Date: 20180509
  Serious: Yes (Other)
  Sender: FDA-Public Use
  Company Number: US-TEVA-2018-US-866087

PATIENT

DRUGS (1)
  1. BUPRENORPHINE. [Suspect]
     Active Substance: BUPRENORPHINE
     Indication: PAIN
     Route: 065

REACTIONS (5)
  - Swollen tongue [Unknown]
  - Lip swelling [Unknown]
  - Tongue ulceration [Unknown]
  - Speech disorder [Unknown]
  - Drug ineffective [Unknown]
